FAERS Safety Report 7988105-X (Version None)
Quarter: 2011Q4

REPORT INFORMATION
  Report Type: 
  Country: None (occurrence: None)
  Receive Date: 20111216
  Receipt Date: 20110606
  Transmission Date: 20120403
  Serious: No
  Sender: FDA-Public Use
  Company Number: US-BRISTOL-MYERS SQUIBB COMPANY-15805476

PATIENT
  Age: 22 Year
  Sex: Male
  Weight: 68 kg

DRUGS (3)
  1. ZOLOFT [Concomitant]
  2. ABILIFY [Suspect]
     Route: 048
  3. ATIVAN [Concomitant]

REACTIONS (1)
  - FATIGUE [None]
